FAERS Safety Report 8106542-X (Version None)
Quarter: 2012Q1

REPORT INFORMATION
  Report Type: 
  Country: None (occurrence: None)
  Receive Date: 20120202
  Receipt Date: 20120123
  Transmission Date: 20120608
  Serious: Yes (Hospitalization, Other)
  Sender: FDA-Public Use
  Company Number: FR-BRISTOL-MYERS SQUIBB COMPANY-16367336

PATIENT
  Age: 78 Year
  Sex: Female
  Weight: 78 kg

DRUGS (8)
  1. COUMADIN [Suspect]
     Route: 048
     Dates: end: 20110312
  2. VITAMIN D [Concomitant]
  3. ACETAMINOPHEN [Concomitant]
     Route: 048
  4. FORLAX [Concomitant]
  5. ATACAND [Concomitant]
     Route: 048
  6. LYRICA [Concomitant]
     Route: 048
     Dates: start: 20110301, end: 20110312
  7. ESIDRIX [Concomitant]
     Dosage: 0.5/D
     Route: 048
  8. DIGOXIN [Concomitant]
     Route: 048
     Dates: end: 20110312

REACTIONS (4)
  - ISCHAEMIC STROKE [None]
  - INTERNATIONAL NORMALISED RATIO INCREASED [None]
  - FALL [None]
  - HAEMATOMA [None]
